FAERS Safety Report 9785350 (Version 2)
Quarter: 2014Q1

REPORT INFORMATION
  Report Type: Spontaneous
  Country: JP (occurrence: None)
  Receive Date: 20131223
  Receipt Date: 20140204
  Transmission Date: 20141002
  Serious: Yes (Hospitalization)
  Sender: FDA-Public Use
  Company Number: ABR_01347_2013

PATIENT
  Age: 35 Year
  Sex: Male
  Weight: 51.5 kg

DRUGS (3)
  1. GLIADEL [Suspect]
     Indication: MALIGNANT GLIOMA
     Dosage: 61.6 MG 1X INTRACEREBRAL
     Dates: start: 20130620, end: 20130620
  2. TEMODAL [Concomitant]
  3. FERON [Concomitant]

REACTIONS (3)
  - Eyelid oedema [None]
  - Pyrexia [None]
  - Hypersensitivity [None]
